FAERS Safety Report 13843201 (Version 1)
Quarter: 2017Q3

REPORT INFORMATION
  Report Type: Spontaneous
  Country: US (occurrence: US)
  Receive Date: 20170808
  Receipt Date: 20170808
  Transmission Date: 20171127
  Serious: No
  Sender: FDA-Public Use
  Company Number: US-TEVA-783726ACC

PATIENT
  Age: 58 Year
  Sex: Female

DRUGS (2)
  1. DESVENLAFAXINE SODIUM [Suspect]
     Active Substance: DESVENLAFAXINE
     Indication: DEPRESSION
     Dosage: 50 (UNITS UNSPECIFIED)
     Dates: start: 201706
  2. DESVENLAFAXINE SODIUM [Suspect]
     Active Substance: DESVENLAFAXINE
     Indication: ANXIETY

REACTIONS (1)
  - Weight increased [Not Recovered/Not Resolved]

NARRATIVE: CASE EVENT DATE: 20170628
